FAERS Safety Report 6696713-1 (Version None)
Quarter: 2010Q2

REPORT INFORMATION
  Report Type: 
  Country: None (occurrence: None)
  Receive Date: 20100422
  Receipt Date: 20100413
  Transmission Date: 20101027
  Serious: Yes (Death, Hospitalization)
  Sender: FDA-Public Use
  Company Number: B0648540A

PATIENT
  Age: 70 Year
  Sex: Male

DRUGS (5)
  1. ERYTHROMYCIN (FORMULATION UNKNOWN) (ERYTHROMYCIN) (GENERIC) [Suspect]
     Indication: PSOAS ABSCESS
     Dosage: 250 MG / FOUR TIMERS PER DAY
  2. SIMVASTATIN (FORMULATION UNKNOWN) [Suspect]
     Indication: HYPERCHOLESTEROLAEMIA
  3. CEFUROXIME SODIUM [Concomitant]
  4. FLOXACILLIN SODIUM [Concomitant]
  5. METRONIDAZOLE [Concomitant]

REACTIONS (8)
  - ANURIA [None]
  - DEVICE RELATED SEPSIS [None]
  - DRUG INTERACTION [None]
  - DYSPNOEA [None]
  - GENERAL PHYSICAL HEALTH DETERIORATION [None]
  - HAEMODIALYSIS [None]
  - RHABDOMYOLYSIS [None]
  - UNRESPONSIVE TO STIMULI [None]
